FAERS Safety Report 8262357 (Version 2)
Quarter: 2013Q4

REPORT INFORMATION
  Report Type: Report from Study
  Country: US (occurrence: US)
  Receive Date: 20111123
  Receipt Date: 20131213
  Transmission Date: 20140711
  Serious: Yes (Hospitalization)
  Sender: FDA-Public Use
  Company Number: US-ROCHE-1012045

PATIENT
  Age: 63 Year
  Sex: Female
  Weight: 114.9 kg

DRUGS (1)
  1. RITUXIMAB [Suspect]
     Indication: RHEUMATOID ARTHRITIS
     Dosage: LAST DOSE PRIOR TO SAE 15-NOV-2010
     Route: 042
     Dates: start: 20071114

REACTIONS (3)
  - Skin necrosis [Recovered/Resolved]
  - Skin ulcer [Recovered/Resolved]
  - Bronchospasm [Recovered/Resolved]
